FAERS Safety Report 9266692 (Version 2)
Quarter: 2013Q2

REPORT INFORMATION
  Report Type: Spontaneous
  Country: US (occurrence: US)
  Receive Date: 20130502
  Receipt Date: 20130528
  Transmission Date: 20140414
  Serious: Yes (Hospitalization, Other)
  Sender: FDA-Public Use
  Company Number: US-NOVOPROD-371897

PATIENT
  Age: 67 Year
  Sex: Female
  Weight: 102 kg

DRUGS (16)
  1. VICTOZA [Suspect]
     Indication: TYPE 2 DIABETES MELLITUS
     Dosage: UNKNOWN
     Route: 058
  2. LEVEMIR [Concomitant]
     Indication: TYPE 2 DIABETES MELLITUS
     Dosage: 70 U QD
     Route: 058
  3. HYDROCHLOROTHIAZIDE [Concomitant]
     Indication: HYPERTENSION
     Dosage: UNK
     Route: 048
  4. ASPIRIN [Concomitant]
     Indication: PRODUCT USED FOR UNKNOWN INDICATION
     Dosage: 81 MG QD
     Route: 048
  5. GLUCOPHAGE [Concomitant]
     Indication: TYPE 2 DIABETES MELLITUS
     Dosage: 500 MG EVERY DAY AND 1000 MG IN THE MORNING AND 1000 MG IN THE EVENING
     Route: 048
  6. PRINIVIL [Concomitant]
     Indication: HYPERTENSION
     Dosage: UNK
     Route: 048
  7. GLUCOTROL [Concomitant]
     Indication: TYPE 2 DIABETES MELLITUS
     Dosage: 10 MG BID
     Route: 048
  8. TRICOR                             /00499301/ [Concomitant]
     Indication: HYPERLIPIDAEMIA
     Dosage: 145 MG QD
     Route: 048
  9. LYRICA [Concomitant]
     Indication: PRODUCT USED FOR UNKNOWN INDICATION
     Dosage: 50 MG QD
     Route: 048
  10. CYMBALTA [Concomitant]
     Indication: DEPRESSION
     Dosage: 60 MG QD
     Route: 048
  11. ALLOPURINOL [Concomitant]
     Indication: PRODUCT USED FOR UNKNOWN INDICATION
     Dosage: 100 MG QOD
  12. FERROUS SULFATE [Concomitant]
     Indication: PRODUCT USED FOR UNKNOWN INDICATION
     Dosage: 325 MG QOD
  13. LASIX                              /00032601/ [Concomitant]
     Indication: PRODUCT USED FOR UNKNOWN INDICATION
     Dosage: 10 MG QD
  14. LISINOPRIL [Concomitant]
     Indication: PRODUCT USED FOR UNKNOWN INDICATION
     Dosage: 10 MG QD
  15. SIMVASTATIN [Concomitant]
     Indication: PRODUCT USED FOR UNKNOWN INDICATION
     Dosage: 10 MG AT NIGHT
  16. MULTIVITAMIN                       /00097801/ [Concomitant]
     Indication: PRODUCT USED FOR UNKNOWN INDICATION
     Dosage: UNKNOWN

REACTIONS (10)
  - Pancreatic carcinoma [Unknown]
  - Pancreatitis acute [Not Recovered/Not Resolved]
  - Syncope [Unknown]
  - Fall [Unknown]
  - Craniocerebral injury [Unknown]
  - Back pain [Unknown]
  - Dehydration [Unknown]
  - Diabetes mellitus inadequate control [Unknown]
  - Hyponatraemia [Unknown]
  - Hypokalaemia [Unknown]
